FAERS Safety Report 6300868-8 (Version None)
Quarter: 2009Q3

REPORT INFORMATION
  Report Type: 
  Country: None (occurrence: None)
  Receive Date: 20090807
  Receipt Date: 20080725
  Transmission Date: 20100115
  Serious: Yes (Other)
  Sender: FDA-Public Use
  Company Number: DE-TEVA-204865ISR

PATIENT
  Sex: Male

DRUGS (1)
  1. SALBUTAMOL [Suspect]
     Route: 055

REACTIONS (6)
  - CHEST PAIN [None]
  - DRUG ADMINISTRATION ERROR [None]
  - DYSPNOEA [None]
  - FOREIGN BODY ASPIRATION [None]
  - NAUSEA [None]
  - OROPHARYNGEAL PAIN [None]
